FAERS Safety Report 5066699-4 (Version None)
Quarter: 2006Q3

REPORT INFORMATION
  Report Type: 
  Country: None (occurrence: None)
  Receive Date: 20060801
  Receipt Date: 20060721
  Transmission Date: 20061208
  Serious: Yes (Hospitalization)
  Sender: FDA-Public Use
  Company Number: JP-JPN-A200602783

PATIENT
  Age: 3 Year
  Sex: Female

DRUGS (4)
  1. ALKERAN [Suspect]
     Indication: STEM CELL TRANSPLANT
     Route: 042
  2. FLUDARABINE PHOSPHATE [Concomitant]
     Indication: STEM CELL TRANSPLANT
     Route: 042
  3. CYTARABINE [Concomitant]
     Indication: STEM CELL TRANSPLANT
     Route: 065
  4. METHOTREXATE [Concomitant]
     Indication: PROPHYLAXIS AGAINST TRANSPLANT REJECTION
     Route: 065

REACTIONS (18)
  - ABDOMINAL PAIN [None]
  - ACIDOSIS [None]
  - BLOOD PRESSURE DECREASED [None]
  - BRAIN NATRIURETIC PEPTIDE INCREASED [None]
  - COUGH [None]
  - DILATATION ATRIAL [None]
  - DYSPNOEA [None]
  - FACE OEDEMA [None]
  - GRAFT VERSUS HOST DISEASE [None]
  - HEART RATE INCREASED [None]
  - HEART SOUNDS ABNORMAL [None]
  - HEPATOMEGALY [None]
  - LOW CARDIAC OUTPUT SYNDROME [None]
  - NOCTURNAL DYSPNOEA [None]
  - OEDEMA [None]
  - PULMONARY HYPERTENSION [None]
  - TRICUSPID VALVE INCOMPETENCE [None]
  - URINE OUTPUT DECREASED [None]
